FAERS Safety Report 23761496 (Version 1)
Quarter: 2024Q2

REPORT INFORMATION
  Report Type: Spontaneous
  Country: LK (occurrence: LK)
  Receive Date: 20240419
  Receipt Date: 20240419
  Transmission Date: 20240716
  Serious: Yes (Death, Hospitalization, Other)
  Sender: FDA-Public Use
  Company Number: LK-Accord-419514

PATIENT
  Age: 27 Year
  Sex: Female
  Weight: 78 kg

DRUGS (15)
  1. LEVETIRACETAM [Suspect]
     Active Substance: LEVETIRACETAM
     Indication: Status epilepticus
  2. PHENYTOIN [Suspect]
     Active Substance: PHENYTOIN
     Indication: Status epilepticus
     Route: 042
  3. NOREPINEPHRINE [Concomitant]
     Active Substance: NOREPINEPHRINE\NOREPINEPHRINE BITARTRATE
     Indication: Hypotension
     Dosage: 0.3 UG/KG/MIN RATE, 0.3-0.6 UG/KG/MIN
  4. THIOPENTAL SODIUM [Concomitant]
     Active Substance: THIOPENTAL SODIUM
     Indication: Status epilepticus
  5. MIDAZOLAM [Concomitant]
     Active Substance: MIDAZOLAM
     Indication: Status epilepticus
  6. MAGNESIUM SULFATE [Concomitant]
     Active Substance: MAGNESIUM SULFATE\MAGNESIUM SULFATE HEPTAHYDRATE
     Indication: Status epilepticus
  7. MORPHINE [Concomitant]
     Active Substance: MORPHINE
     Indication: Status epilepticus
  8. MANNITOL [Concomitant]
     Active Substance: MANNITOL
     Indication: Status epilepticus
  9. ATRACURIUM [Concomitant]
     Active Substance: ATRACURIUM
     Indication: Status epilepticus
  10. EPINEPHRINE [Concomitant]
     Active Substance: EPINEPHRINE
     Indication: Cardiac arrest
     Dosage: 0.3-0.6 UG/KG/MIN
  11. DOPAMINE [Concomitant]
     Active Substance: DOPAMINE HYDROCHLORIDE
     Indication: Cardiac arrest
     Dosage: 20-10 UG/KG/MIN
  12. ASPIRIN [Concomitant]
     Active Substance: ASPIRIN
     Indication: Electrocardiogram ST segment elevation
  13. CLOPIDOGREL [Concomitant]
     Active Substance: CLOPIDOGREL BISULFATE
     Indication: Electrocardiogram ST segment elevation
  14. ATORVASTATIN [Concomitant]
     Active Substance: ATORVASTATIN
     Indication: Electrocardiogram ST segment elevation
  15. LACOSAMIDE [Concomitant]
     Active Substance: LACOSAMIDE
     Indication: Status epilepticus

REACTIONS (3)
  - Rhabdomyolysis [Fatal]
  - Condition aggravated [Fatal]
  - Renal injury [Fatal]
